FAERS Safety Report 9213825 (Version 1)
Quarter: 2013Q2

REPORT INFORMATION
  Report Type: Spontaneous
  Country: DE (occurrence: DE)
  Receive Date: 20130405
  Receipt Date: 20130405
  Transmission Date: 20140414
  Serious: Yes (Hospitalization)
  Sender: FDA-Public Use
  Company Number: DE-BRISTOL-MYERS SQUIBB COMPANY-18721902

PATIENT
  Sex: 0

DRUGS (3)
  1. SPRYCEL [Suspect]
  2. LITALIR [Suspect]
  3. IMATINIB MESILATE [Suspect]

REACTIONS (1)
  - Neurological examination abnormal [Unknown]
